FAERS Safety Report 25802168 (Version 1)
Quarter: 2025Q3

REPORT INFORMATION
  Report Type: Spontaneous
  Country: CA (occurrence: CA)
  Receive Date: 20250915
  Receipt Date: 20250915
  Transmission Date: 20251020
  Serious: Yes (Other)
  Sender: AUROBINDO
  Company Number: CA-AUROBINDO-AUR-APL-2025-045505

PATIENT
  Age: 15 Year
  Sex: Female

DRUGS (4)
  1. PANTOPRAZOLE SODIUM [Suspect]
     Active Substance: PANTOPRAZOLE SODIUM
     Indication: Product used for unknown indication
     Route: 065
  2. COLCHICINE [Suspect]
     Active Substance: COLCHICINE
     Indication: Product used for unknown indication
     Route: 065
  3. DEXTROSE [Concomitant]
     Active Substance: DEXTROSE MONOHYDRATE
     Indication: Product used for unknown indication
     Route: 042
  4. SALINE [Concomitant]
     Active Substance: SODIUM CHLORIDE
     Indication: Product used for unknown indication
     Route: 065

REACTIONS (13)
  - Pancytopenia [Not Recovered/Not Resolved]
  - Suicide attempt [Unknown]
  - Lactic acidosis [Recovered/Resolved]
  - Abdominal pain [Unknown]
  - Leukocytosis [Unknown]
  - Vomiting [Unknown]
  - Gastrointestinal disorder [Unknown]
  - Hepatic function abnormal [Not Recovered/Not Resolved]
  - Hypertransaminasaemia [Recovered/Resolved]
  - Coagulopathy [Recovered/Resolved]
  - Toxicity to various agents [Unknown]
  - Intentional overdose [Unknown]
  - Intentional product misuse [Unknown]
